FAERS Safety Report 7990728-9 (Version None)
Quarter: 2011Q4

REPORT INFORMATION
  Report Type: 
  Country: None (occurrence: None)
  Receive Date: 20111219
  Receipt Date: 20111214
  Transmission Date: 20120403
  Serious: No
  Sender: FDA-Public Use
  Company Number: US-BAYER-2011-121088

PATIENT
  Age: 83 Year
  Sex: Female
  Weight: 91 kg

DRUGS (3)
  1. ASPIRIN [Concomitant]
  2. AMLODIPINE [Concomitant]
  3. ALEVE (CAPLET) [Suspect]
     Indication: ARTHRITIS
     Dosage: 2 DF, PRN
     Dates: end: 20111101

REACTIONS (1)
  - BLOOD PRESSURE INCREASED [None]
